FAERS Safety Report 5482039-0 (Version None)
Quarter: 2007Q4

REPORT INFORMATION
  Report Type: 
  Country: None (occurrence: None)
  Receive Date: 20071004
  Receipt Date: 20070919
  Transmission Date: 20080405
  Serious: Yes (Hospitalization, Other)
  Sender: FDA-Public Use
  Company Number: 2007US-10139

PATIENT
  Age: 49 Year
  Sex: Female

DRUGS (3)
  1. CLORAZEPATE DIPOTASSIUM [Suspect]
     Indication: DRUG USE FOR UNKNOWN INDICATION
     Dosage: 55MG, 11 TABS IN 1 DOSE, ORAL
     Route: 048
  2. ZIPRASIDONE HCL [Suspect]
     Indication: DRUG USE FOR UNKNOWN INDICATION
     Dosage: 235 20 MG TABS, 4700MG IN 1 DOSE, ORAL
     Route: 048
  3. TOPIRAMATE (TOPIRAMATE) UNKNOWN [Concomitant]

REACTIONS (4)
  - DEPRESSED LEVEL OF CONSCIOUSNESS [None]
  - INTENTIONAL OVERDOSE [None]
  - MIOSIS [None]
  - SOMNOLENCE [None]
